FAERS Safety Report 6511273-3 (Version None)
Quarter: 2009Q4

REPORT INFORMATION
  Report Type: 
  Country: None (occurrence: None)
  Receive Date: 20091222
  Receipt Date: 20090320
  Transmission Date: 20100525
  Serious: No
  Sender: FDA-Public Use
  Company Number: US-ASTRAZENECA-2009UW07258

PATIENT
  Age: 65 Year
  Sex: Female
  Weight: 68.5 kg

DRUGS (8)
  1. CRESTOR [Suspect]
     Route: 048
     Dates: start: 20080301, end: 20090317
  2. SOMA [Concomitant]
  3. NIASPAN [Concomitant]
  4. VYTORIN [Concomitant]
  5. ACTOPLUS MET [Concomitant]
  6. INSULIN [Concomitant]
  7. GLUMETZA [Concomitant]
  8. TRAMADOL HCL [Concomitant]
     Indication: ARTHRALGIA

REACTIONS (1)
  - DYSGEUSIA [None]
